FAERS Safety Report 10196106 (Version 2)
Quarter: 2014Q2

REPORT INFORMATION
  Report Type: Spontaneous
  Country: JP (occurrence: JP)
  Receive Date: 20140527
  Receipt Date: 20140527
  Transmission Date: 20141212
  Serious: Yes (Other)
  Sender: FDA-Public Use
  Company Number: JP-ELI_LILLY_AND_COMPANY-JP201404000016

PATIENT
  Age: 85 Year
  Sex: Female

DRUGS (6)
  1. FORTEO [Suspect]
     Indication: OSTEOPOROSIS
     Dosage: 20 UG, QD
     Route: 058
     Dates: start: 20130717
  2. FORTEO [Suspect]
     Indication: SPINAL COMPRESSION FRACTURE
  3. LOXONIN [Concomitant]
  4. OPALMON [Concomitant]
  5. MAGMITT [Concomitant]
  6. KAKKONTOU [Concomitant]

REACTIONS (4)
  - Eyeball rupture [Recovered/Resolved]
  - Fall [Recovered/Resolved]
  - Hot flush [Recovered/Resolved]
  - Pyrexia [Recovered/Resolved]
